FAERS Safety Report 4986767-2 (Version None)
Quarter: 2006Q2

REPORT INFORMATION
  Report Type: 
  Country: None (occurrence: None)
  Receive Date: 20060428
  Receipt Date: 20060419
  Transmission Date: 20061013
  Serious: Yes (Life-Threatening, Hospitalization, Other)
  Sender: FDA-Public Use
  Company Number: US-MERCK-0604USA03303

PATIENT
  Age: 73 Year
  Sex: Male

DRUGS (1)
  1. FOSAMAX [Suspect]
     Indication: OSTEOPOROTIC FRACTURE
     Route: 048
     Dates: start: 20030101, end: 20060401

REACTIONS (3)
  - GASTROOESOPHAGEAL REFLUX DISEASE [None]
  - IDIOPATHIC THROMBOCYTOPENIC PURPURA [None]
  - VARICES OESOPHAGEAL [None]
